FAERS Safety Report 8549277-1 (Version None)
Quarter: 2012Q3

REPORT INFORMATION
  Report Type: 
  Country: None (occurrence: None)
  Receive Date: 20120730
  Receipt Date: 20120720
  Transmission Date: 20120928
  Serious: No
  Sender: FDA-Public Use
  Company Number: US-B.I. PHARMACEUTICALS,INC./RIDGEFIELD-2012-BP-16355BP

PATIENT
  Age: 50 Year
  Sex: Male

DRUGS (3)
  1. AN UNKNOWN THIRD MEDICATION [Concomitant]
  2. METFORMIN HYDROCHLORIDE [Concomitant]
  3. TRADJENTA [Suspect]
     Dosage: 5 MG
     Route: 048

REACTIONS (2)
  - DRUG INEFFECTIVE [None]
  - BLOOD GLUCOSE INCREASED [None]
